FAERS Safety Report 6143849-X (Version None)
Quarter: 2009Q2

REPORT INFORMATION
  Report Type: 
  Country: None (occurrence: None)
  Receive Date: 20090403
  Receipt Date: 20090330
  Transmission Date: 20091009
  Serious: Yes (Hospitalization)
  Sender: FDA-Public Use
  Company Number: JP-MERCK-0903USA05586

PATIENT
  Sex: Female

DRUGS (1)
  1. FOSAMAX [Suspect]
     Route: 048
     Dates: start: 20081123, end: 20090301

REACTIONS (1)
  - OVARIAN NEOPLASM [None]
